FAERS Safety Report 11100459 (Version 1)
Quarter: 2015Q2

REPORT INFORMATION
  Report Type: Spontaneous
  Country: GB (occurrence: None)
  Receive Date: 20150506
  Receipt Date: 20150506
  Transmission Date: 20150821
  Serious: Yes (Hospitalization)
  Sender: FDA-Public Use
  Company Number: PR 8629

PATIENT
  Age: 52 Year
  Sex: Female

DRUGS (5)
  1. ZIOPTAN [Suspect]
     Active Substance: TAFLUPROST
     Indication: OPEN ANGLE GLAUCOMA
     Dates: start: 201306
  2. COSOPT (DORZOLAMIDE YDROCHLORIDE (+) TIMOLOL MAELEATE) [Concomitant]
  3. DIAMOX (ACETAZOLAMIDE) [Concomitant]
  4. CONCOR (BISOPROLOL FUMARATE) [Concomitant]
  5. ALPHAGAN (BRIMONIDINE TARTRATE) [Concomitant]

REACTIONS (6)
  - Palpitations [None]
  - Eye swelling [None]
  - Eye inflammation [None]
  - Ocular hyperaemia [None]
  - Hypersensitivity [None]
  - Intraocular pressure increased [None]

NARRATIVE: CASE EVENT DATE: 201412
